FAERS Safety Report 15394744 (Version 2)
Quarter: 2018Q3

REPORT INFORMATION
  Report Type: Report from Study
  Country: BR (occurrence: BR)
  Receive Date: 20180918
  Receipt Date: 20180926
  Transmission Date: 20181010
  Serious: No
  Sender: FDA-Public Use
  Company Number: BR-EMD SERONO-E2B_90058831

PATIENT
  Sex: Female

DRUGS (2)
  1. REBIF [Suspect]
     Active Substance: INTERFERON BETA-1A
     Route: 058
     Dates: start: 20170103
  2. REBIF [Suspect]
     Active Substance: INTERFERON BETA-1A
     Indication: MULTIPLE SCLEROSIS
     Dosage: SINCE 2013, THE PATIENT WAS USING AUTO APPLICATOR (UNSPECIFIED DOSE)
     Route: 058

REACTIONS (7)
  - Injection site pain [Unknown]
  - Injection site nodule [Unknown]
  - Injection site hyperaesthesia [Unknown]
  - Injection site erythema [Unknown]
  - Injection site discolouration [Unknown]
  - Abdominal discomfort [Unknown]
  - Injection site bruising [Unknown]

NARRATIVE: CASE EVENT DATE: 2017
